FAERS Safety Report 23916055 (Version 1)
Quarter: 2024Q2

REPORT INFORMATION
  Report Type: Spontaneous
  Country: US (occurrence: US)
  Receive Date: 20240529
  Receipt Date: 20240529
  Transmission Date: 20240716
  Serious: No
  Sender: FDA-Public Use
  Company Number: US-SA-SAC20240523000695

PATIENT
  Sex: Male

DRUGS (2)
  1. DUPIXENT [Suspect]
     Active Substance: DUPILUMAB
     Indication: Dermatitis atopic
     Dosage: 600 MG, 1X
     Route: 058
  2. DUPIXENT [Suspect]
     Active Substance: DUPILUMAB
     Dosage: 300 MG
     Route: 058

REACTIONS (5)
  - Hypersensitivity [Recovered/Resolved]
  - Exfoliative rash [Recovered/Resolved]
  - Rash erythematous [Recovered/Resolved]
  - Skin plaque [Recovered/Resolved]
  - Skin haemorrhage [Recovered/Resolved]
